FAERS Safety Report 8908840 (Version 1)
Quarter: 2012Q4

REPORT INFORMATION
  Report Type: 
  Country: US (occurrence: US)
  Receive Date: 20121113
  Receipt Date: 20121113
  Transmission Date: 20130627
  Serious: No
  Sender: FDA-Public Use
  Company Number: US-AMGEN-USASP2012011809

PATIENT
  Age: 61 Year
  Sex: Female

DRUGS (8)
  1. METHOTREXATE [Concomitant]
     Dosage: 2.5 mg, UNK
  2. BENADRYL                           /00000402/ [Concomitant]
     Dosage: 25 mg, UNK
  3. NASONEX [Concomitant]
     Dosage: 50 mug, UNK
  4. CLARITIN                           /00413701/ [Concomitant]
     Dosage: 10 mg, UNK
  5. FISH OIL [Concomitant]
  6. MULTIVITAMIN                       /00097801/ [Concomitant]
  7. FOLIC ACID [Concomitant]
  8. ENBREL [Suspect]
     Indication: PRODUCT USED FOR UNKNOWN INDICATION
     Dosage: 50 mg, qwk
     Route: 058

REACTIONS (1)
  - Sinusitis [Unknown]
